FAERS Safety Report 16758750 (Version 1)
Quarter: 2019Q3

REPORT INFORMATION
  Report Type: Spontaneous
  Country: DE (occurrence: DE)
  Receive Date: 20190830
  Receipt Date: 20190830
  Transmission Date: 20191005
  Serious: Yes (Life-Threatening, Hospitalization, Other)
  Sender: FDA-Public Use
  Company Number: DE-ALKEM LABORATORIES LIMITED-DE-ALKEM-2017-02262

PATIENT
  Age: 1 Day
  Sex: Female
  Weight: 3.25 kg

DRUGS (3)
  1. FOLIO [Suspect]
     Active Substance: FOLIC ACID
     Dosage: UNKNOWN
     Route: 064
  2. CYTOTEC [Suspect]
     Active Substance: MISOPROSTOL
     Dosage: UNKNOWN
     Route: 064
  3. QUETIAPINE FUMARATE. [Suspect]
     Active Substance: QUETIAPINE FUMARATE
     Dosage: UNKNOWN
     Route: 064

REACTIONS (4)
  - Atrial septal defect [Unknown]
  - Lactic acidosis [Recovered/Resolved]
  - Foetal exposure during pregnancy [Unknown]
  - Apparent life threatening event [Recovered/Resolved]

NARRATIVE: CASE EVENT DATE: 20161002
